FAERS Safety Report 19542311 (Version 3)
Quarter: 2021Q3

REPORT INFORMATION
  Report Type: Report from Study
  Country: FR (occurrence: FR)
  Receive Date: 20210713
  Receipt Date: 20210726
  Transmission Date: 20211014
  Serious: Yes (Hospitalization)
  Sender: FDA-Public Use
  Company Number: FR-ROCHE-2846580

PATIENT
  Age: 70 Year
  Sex: Female

DRUGS (4)
  1. ATEZOLIZUMAB. [Suspect]
     Active Substance: ATEZOLIZUMAB
     Indication: NON-SMALL CELL LUNG CANCER
     Dosage: MOST RECENT DOSE OF ATEZOLIZUMAB ON 26/MAY/2021.
     Route: 041
     Dates: start: 20200723
  2. VANCOMYCINE [Suspect]
     Active Substance: VANCOMYCIN
     Indication: NON-SMALL CELL LUNG CANCER
     Route: 065
  3. PACLITAXEL. [Suspect]
     Active Substance: PACLITAXEL
     Indication: NON-SMALL CELL LUNG CANCER
     Dosage: MOST RECENT DOSE OF PACLITAXEL ON 26/MAY/2021.
     Route: 065
     Dates: start: 20200723
  4. CARBOPLATINE [Suspect]
     Active Substance: CARBOPLATIN
     Indication: NON-SMALL CELL LUNG CANCER
     Dosage: MOST RECENT DOSE OF CARBOPLATINE ON 26/MAY/2021.
     Route: 065
     Dates: start: 20200723

REACTIONS (5)
  - Dermatitis exfoliative generalised [Not Recovered/Not Resolved]
  - Anaphylactic reaction [Recovered/Resolved]
  - Pain [Not Recovered/Not Resolved]
  - Skin toxicity [Not Recovered/Not Resolved]
  - Intervertebral discitis [Not Recovered/Not Resolved]

NARRATIVE: CASE EVENT DATE: 20210605
